FAERS Safety Report 16290889 (Version 2)
Quarter: 2019Q2

REPORT INFORMATION
  Report Type: Spontaneous
  Country: US (occurrence: US)
  Receive Date: 20190509
  Receipt Date: 20190612
  Transmission Date: 20190711
  Serious: No
  Sender: FDA-Public Use
  Company Number: US-PFIZER INC-2019194767

PATIENT
  Age: 58 Year
  Sex: Male

DRUGS (1)
  1. TALWIN [Suspect]
     Active Substance: PENTAZOCINE LACTATE
     Dosage: UNK
     Dates: end: 20130927

REACTIONS (2)
  - Drug hypersensitivity [Unknown]
  - Nervousness [Unknown]

NARRATIVE: CASE EVENT DATE: 20130927
